FAERS Safety Report 23149968 (Version 1)
Quarter: 2023Q4

REPORT INFORMATION
  Report Type: Spontaneous
  Country: US (occurrence: US)
  Receive Date: 20231106
  Receipt Date: 20231106
  Transmission Date: 20240109
  Serious: No
  Sender: FDA-Public Use
  Company Number: US-PFIZER INC-202300353171

PATIENT
  Age: 82 Year
  Sex: Female

DRUGS (8)
  1. VYNDAMAX [Suspect]
     Active Substance: TAFAMIDIS
     Dosage: 61 MG, 1X/DAY
     Dates: start: 2023, end: 2023
  2. WARFARIN [Concomitant]
     Active Substance: WARFARIN
     Indication: Anticoagulant therapy
     Dosage: 3 MG (SUNDAY, TUESDAY, THURSDAY AND SATURDAY )
  3. WARFARIN [Concomitant]
     Active Substance: WARFARIN
     Dosage: 2 MG (MONDAY, WEDNESDAY AND FRIDAY)
  4. TORSEMIDE [Concomitant]
     Active Substance: TORSEMIDE
     Indication: Cardiac disorder
     Dosage: 80 MG, 2X/DAY (80MG IN THE MORNING AND 80MG AT LUNCH TIME)
  5. MONTELUKAST [Concomitant]
     Active Substance: MONTELUKAST SODIUM
     Dosage: 10 MG, 1X/DAY
  6. DIETARY SUPPLEMENT [Concomitant]
     Active Substance: DIETARY SUPPLEMENT
     Dosage: 500 MG
  7. RETINOL [Concomitant]
     Active Substance: RETINOL
     Dosage: UNK
  8. VITAMIN B12 [Concomitant]
     Active Substance: CYANOCOBALAMIN

REACTIONS (2)
  - Memory impairment [Unknown]
  - Bradykinesia [Unknown]

NARRATIVE: CASE EVENT DATE: 20230101
